FAERS Safety Report 14804854 (Version 1)
Quarter: 2018Q2

REPORT INFORMATION
  Report Type: Spontaneous
  Country: US (occurrence: US)
  Receive Date: 20180424
  Receipt Date: 20180424
  Transmission Date: 20180711
  Serious: Yes (Other)
  Sender: FDA-Public Use
  Company Number: None

PATIENT
  Age: 59 Year
  Sex: Female

DRUGS (2)
  1. IBRANCE [Suspect]
     Active Substance: PALBOCICLIB
     Indication: BREAST CANCER FEMALE
     Dosage: 125MG DAILY WITH FOOD FOR 21 DAYS OF A 28 DAY PO
     Route: 048
     Dates: start: 20180217, end: 20180418
  2. IBRANCE [Suspect]
     Active Substance: PALBOCICLIB
     Indication: BREAST CANCER FEMALE
     Dosage: 100MG DAILY WITH FOOD FOR 21 DAYS OF A 28 DAY PO
     Route: 048
     Dates: start: 20180419

REACTIONS (2)
  - Full blood count decreased [None]
  - Herpes zoster [None]

NARRATIVE: CASE EVENT DATE: 20180418
